FAERS Safety Report 10549585 (Version 2)
Quarter: 2015Q1

REPORT INFORMATION
  Report Type: Report from Study
  Country: DE (occurrence: DE)
  Receive Date: 20141028
  Receipt Date: 20150127
  Transmission Date: 20150720
  Serious: Yes (Congenital Anomaly, Other)
  Sender: FDA-Public Use
  Company Number: DE-BAYER-2014-156055

PATIENT
  Age: 0 Day
  Sex: Male
  Weight: 2.26 kg

DRUGS (1)
  1. BETAFERON [Suspect]
     Active Substance: INTERFERON BETA-1B
     Route: 064

REACTIONS (4)
  - Duodenal atresia [None]
  - Foetal exposure timing unspecified [None]
  - Premature baby [None]
  - Trisomy 21 [None]

NARRATIVE: CASE EVENT DATE: 20140605
